FAERS Safety Report 7605412-0 (Version None)
Quarter: 2011Q3

REPORT INFORMATION
  Report Type: 
  Country: None (occurrence: None)
  Receive Date: 20110706
  Receipt Date: 20110624
  Transmission Date: 20111222
  Serious: Yes (Life-Threatening, Hospitalization, Other)
  Sender: FDA-Public Use
  Company Number: CL-320-2011

PATIENT
  Age: 50 Year
  Sex: Female

DRUGS (1)
  1. KETOROLAC TROMETHAMINE [Suspect]
     Indication: RENAL COLIC
     Dosage: 60MG ONCE IM/ONCE
     Route: 030

REACTIONS (14)
  - BLOOD BLISTER [None]
  - DISSEMINATED INTRAVASCULAR COAGULATION [None]
  - RENAL FAILURE ACUTE [None]
  - TACHYCARDIA [None]
  - HYPOTENSION [None]
  - HEPATIC FUNCTION ABNORMAL [None]
  - BLOOD ALKALINE PHOSPHATASE INCREASED [None]
  - BLOOD BILIRUBIN INCREASED [None]
  - SKIN NECROSIS [None]
  - TACHYPNOEA [None]
  - PLATELET COUNT DECREASED [None]
  - ACTIVATED PARTIAL THROMBOPLASTIN TIME PROLONGED [None]
  - PURPURA FULMINANS [None]
  - PROTHROMBIN TIME PROLONGED [None]
